FAERS Safety Report 18463704 (Version 3)
Quarter: 2020Q4

REPORT INFORMATION
  Report Type: Spontaneous
  Country: PL (occurrence: PL)
  Receive Date: 20201104
  Receipt Date: 20201112
  Transmission Date: 20210114
  Serious: Yes (Death, Hospitalization, Other)
  Sender: FDA-Public Use
  Company Number: PL-GILEAD-2020-0502502

PATIENT
  Age: 31 Year
  Sex: Male
  Weight: 30 kg

DRUGS (8)
  1. RIFAXIMINA [Concomitant]
     Active Substance: RIFAXIMIN
     Indication: DIARRHOEA
     Dosage: UNK
     Route: 048
     Dates: start: 20200902, end: 20200924
  2. SORBIFER [FERROUS SULFATE] [Concomitant]
     Indication: ANAEMIA
     Dosage: UNK
     Route: 048
     Dates: start: 20200902, end: 20200924
  3. KALIPOZ [Concomitant]
     Active Substance: POTASSIUM CHLORIDE
     Indication: HYPOCALCAEMIA
     Dosage: UNK
     Route: 048
     Dates: start: 20200902, end: 20200924
  4. FOLIC ACID. [Concomitant]
     Active Substance: FOLIC ACID
     Indication: ANAEMIA
     Dosage: 15 MG
     Route: 048
     Dates: start: 20200902, end: 20200924
  5. PROTIFAR [Concomitant]
     Active Substance: DIETARY SUPPLEMENT
     Indication: MALNUTRITION
     Dosage: UNK
     Route: 048
     Dates: start: 20200902, end: 20200924
  6. BIKTARVY [Suspect]
     Active Substance: BICTEGRAVIR SODIUM\EMTRICITABINE\TENOFOVIR ALAFENAMIDE FUMARATE
     Indication: HIV INFECTION
     Dosage: UNK
     Route: 048
     Dates: start: 20200903, end: 20200924
  7. VITAMIN B [Concomitant]
     Active Substance: VITAMIN B
     Indication: ANAEMIA
     Dosage: UNK
     Route: 048
     Dates: start: 20200902, end: 20200924
  8. FLUCONAZOLE. [Concomitant]
     Active Substance: FLUCONAZOLE
     Indication: FUNGAL INFECTION
     Dosage: 200 MG
     Route: 048
     Dates: start: 20200902, end: 20200924

REACTIONS (4)
  - General physical health deterioration [Unknown]
  - Death [Fatal]
  - Melaena [Unknown]
  - Vomiting [Unknown]

NARRATIVE: CASE EVENT DATE: 20200916
